FAERS Safety Report 25082652 (Version 2)
Quarter: 2025Q4

REPORT INFORMATION
  Report Type: Spontaneous
  Country: US (occurrence: US)
  Receive Date: 20250317
  Receipt Date: 20251024
  Transmission Date: 20260117
  Serious: Yes (Hospitalization, Other)
  Sender: PIRAMAL
  Company Number: US-PCCINC-2025-PPL-000141

PATIENT

DRUGS (2)
  1. GABLOFEN [Suspect]
     Active Substance: BACLOFEN
     Indication: Product used for unknown indication
     Dosage: UNK
     Route: 037
  2. BACLOFEN [Concomitant]
     Active Substance: BACLOFEN
     Indication: Product used for unknown indication
     Dosage: UNK
     Route: 048

REACTIONS (6)
  - Tachycardia [Unknown]
  - Muscle rigidity [Recovering/Resolving]
  - Respiratory rate decreased [Unknown]
  - Blood creatine phosphokinase increased [Unknown]
  - Withdrawal syndrome [Unknown]
  - Pyrexia [Unknown]
